FAERS Safety Report 25788277 (Version 2)
Quarter: 2025Q4

REPORT INFORMATION
  Report Type: Spontaneous
  Country: US (occurrence: US)
  Receive Date: 20250910
  Receipt Date: 20251118
  Transmission Date: 20260117
  Serious: Yes (Hospitalization, Other)
  Sender: BRISTOL-MYERS SQUIBB COMPANY
  Company Number: US-BRISTOL-MYERS SQUIBB COMPANY-2025-125022

PATIENT
  Age: 69 Year
  Sex: Male
  Weight: 87.54 kg

DRUGS (1)
  1. POMALYST [Suspect]
     Active Substance: POMALIDOMIDE
     Indication: Plasma cell myeloma
     Dosage: FREQUENCY: 3MG (1 CAPSULE) ORALLY DAILY FOR 21 DAYS ON AND 7 DAYS OFF EACH 28-DAY CYCLE
     Route: 048

REACTIONS (2)
  - Pulmonary oedema [Recovered/Resolved]
  - Nervous system disorder [Not Recovered/Not Resolved]

NARRATIVE: CASE EVENT DATE: 20251113
